FAERS Safety Report 7386371-5 (Version None)
Quarter: 2011Q1

REPORT INFORMATION
  Report Type: 
  Country: None (occurrence: None)
  Receive Date: 20110331
  Receipt Date: 20110318
  Transmission Date: 20110831
  Serious: Yes (Hospitalization, Other)
  Sender: FDA-Public Use
  Company Number: PHFR2011GB00447

PATIENT
  Sex: Male

DRUGS (7)
  1. CLOZARIL [Suspect]
     Dosage: 500 MG, QD
     Route: 048
  2. PROMETHAZINE [Concomitant]
  3. DIAZEPAM [Concomitant]
     Indication: DEPENDENCE
     Dosage: 30 MG, QD
     Route: 048
  4. METFORMIN HCL [Concomitant]
  5. METHADONE [Concomitant]
     Indication: DEPENDENCE
     Dosage: 120ML
     Route: 048
  6. CLOZARIL [Suspect]
     Indication: SCHIZOPHRENIA
     Dosage: 500 MG, QD
     Route: 048
     Dates: start: 20080308, end: 20101231
  7. SIMVASTATIN [Concomitant]

REACTIONS (4)
  - OVERDOSE [None]
  - EPILEPSY [None]
  - HEPATITIS C VIRUS TEST POSITIVE [None]
  - CONFUSIONAL STATE [None]
